FAERS Safety Report 7206213-8 (Version None)
Quarter: 2011Q1

REPORT INFORMATION
  Report Type: 
  Country: None (occurrence: None)
  Receive Date: 20110103
  Receipt Date: 20101221
  Transmission Date: 20110831
  Serious: Yes (Other)
  Sender: FDA-Public Use
  Company Number: US-ELI_LILLY_AND_COMPANY-US201003000548

PATIENT
  Sex: Female

DRUGS (2)
  1. FORTEO [Suspect]
     Dosage: 20 UG, DAILY (1/D)
  2. FORTEO [Suspect]
     Indication: OSTEOPOROSIS
     Dosage: 20 UG, DAILY (1/D)
     Dates: start: 20091227

REACTIONS (13)
  - ARTHRALGIA [None]
  - ARTHROPATHY [None]
  - HYPOAESTHESIA [None]
  - DIVERTICULITIS [None]
  - ABDOMINAL DISTENSION [None]
  - LIMB DISCOMFORT [None]
  - MUSCLE SPASMS [None]
  - PAIN IN EXTREMITY [None]
  - RENAL MASS [None]
  - VISUAL ACUITY REDUCED [None]
  - WEIGHT INCREASED [None]
  - PARAESTHESIA [None]
  - MALAISE [None]
